APPROVED DRUG PRODUCT: FOSINOPRIL SODIUM
Active Ingredient: FOSINOPRIL SODIUM
Strength: 40MG
Dosage Form/Route: TABLET;ORAL
Application: A076906 | Product #003
Applicant: APOTEX INC
Approved: May 17, 2005 | RLD: No | RS: No | Type: DISCN